FAERS Safety Report 25474113 (Version 1)
Quarter: 2025Q2

REPORT INFORMATION
  Report Type: Spontaneous
  Country: US (occurrence: US)
  Receive Date: 20250624
  Receipt Date: 20250624
  Transmission Date: 20250716
  Serious: No
  Sender: KRAMER LABORATORIES
  Company Number: US-KRAMERLABS-2024-US-069344

PATIENT

DRUGS (1)
  1. NIZORAL A-D [Suspect]
     Active Substance: KETOCONAZOLE
     Indication: Product use in unapproved indication
     Route: 061

REACTIONS (3)
  - Pruritus [Unknown]
  - Dandruff [Unknown]
  - Product use in unapproved indication [Unknown]
